FAERS Safety Report 4424049-8 (Version None)
Quarter: 2004Q3

REPORT INFORMATION
  Report Type: 
  Country: None (occurrence: None)
  Receive Date: 20040805
  Receipt Date: 20040716
  Transmission Date: 20050211
  Serious: Yes (Other)
  Sender: FDA-Public Use
  Company Number: GBWYE941130JUL04

PATIENT
  Age: 33 Year
  Sex: Female

DRUGS (4)
  1. EFFEXOR [Suspect]
     Indication: ANXIETY
     Dosage: 37.5 MG 2X PER 1 DAY ORAL
     Route: 048
     Dates: start: 20040401
  2. EFFEXOR [Suspect]
     Indication: DEPRESSION
     Dosage: 37.5 MG 2X PER 1 DAY ORAL
     Route: 048
     Dates: start: 20040401
  3. PROCHLORPERAZINE [Concomitant]
  4. CITALOPRAM [Concomitant]

REACTIONS (4)
  - FEELING ABNORMAL [None]
  - FEELING HOT AND COLD [None]
  - PARAESTHESIA [None]
  - POLLAKIURIA [None]
